FAERS Safety Report 12396512 (Version 1)
Quarter: 2016Q2

REPORT INFORMATION
  Report Type: Spontaneous
  Country: US (occurrence: None)
  Receive Date: 20160523
  Receipt Date: 20160523
  Transmission Date: 20160815
  Serious: Yes (Disabling)
  Sender: FDA-Public Use
  Company Number: None

PATIENT
  Age: 17 Year
  Sex: Male
  Weight: 66.23 kg

DRUGS (4)
  1. CLARITIN-D 24 HOUR [Suspect]
     Active Substance: LORATADINE\PSEUDOEPHEDRINE SULFATE
     Indication: NASAL CONGESTION
     Dosage: 1 CAPSULE(S) IN THE MORNING TAKEN BY MOUTH
     Route: 048
     Dates: start: 20150930, end: 20160509
  2. VITAMIN D3 [Concomitant]
     Active Substance: CHOLECALCIFEROL
  3. CLARITIN-D 24 HOUR [Suspect]
     Active Substance: LORATADINE\PSEUDOEPHEDRINE SULFATE
     Indication: SEASONAL ALLERGY
     Dosage: 1 CAPSULE(S) IN THE MORNING TAKEN BY MOUTH
     Route: 048
     Dates: start: 20150930, end: 20160509
  4. MULTI-VITAMIN [Concomitant]
     Active Substance: .ALPHA.-TOCOPHEROL ACETATE, DL-\ASCORBIC ACID\CYANOCOBALAMIN\FLUORIDE ION\FOLIC ACID\NIACIN\PYRIDOXINE\RIBOFLAVIN\THIAMINE\VITAMIN A\VITAMIN D

REACTIONS (16)
  - Speech disorder [None]
  - Educational problem [None]
  - Personality change [None]
  - Depressed mood [None]
  - Weight decreased [None]
  - Suicidal ideation [None]
  - Tremor [None]
  - Apathy [None]
  - Pallor [None]
  - Disturbance in attention [None]
  - Decreased appetite [None]
  - Irritability [None]
  - Anxiety [None]
  - Depression [None]
  - Hyperhidrosis [None]
  - Insomnia [None]

NARRATIVE: CASE EVENT DATE: 20160501
